FAERS Safety Report 9377791 (Version 1)
Quarter: 2013Q2

REPORT INFORMATION
  Report Type: Spontaneous
  Country: US (occurrence: None)
  Receive Date: 20130625
  Receipt Date: 20130625
  Transmission Date: 20140414
  Serious: Yes (Other)
  Sender: FDA-Public Use
  Company Number: 2013US001766

PATIENT
  Age: 49 Year
  Sex: Male
  Weight: 95 kg

DRUGS (4)
  1. ICLUSIG [Suspect]
     Indication: LUNG CARCINOMA CELL TYPE UNSPECIFIED STAGE 0
     Route: 048
     Dates: start: 20130514, end: 20130604
  2. LISINOPRIL (LISINOPRIL) [Concomitant]
  3. METFORMIN (METFORMIN) [Concomitant]
  4. OXYCONTIN (OXYCODONE HYDROCHLORIDE) [Concomitant]

REACTIONS (5)
  - Metastases to liver [None]
  - Liver injury [None]
  - Off label use [None]
  - Disease progression [None]
  - Drug ineffective [None]
